FAERS Safety Report 6026385-0 (Version None)
Quarter: 2009Q1

REPORT INFORMATION
  Report Type: 
  Country: None (occurrence: None)
  Receive Date: 20090102
  Receipt Date: 20081223
  Transmission Date: 20090719
  Serious: Yes (Hospitalization)
  Sender: FDA-Public Use
  Company Number: PHHY2008NZ32047

PATIENT
  Sex: Female

DRUGS (11)
  1. CLOZARIL [Suspect]
     Indication: SCHIZOPHRENIA
     Dosage: 50 MG MANE, 400 MG NOCTE
     Route: 048
     Dates: start: 20061101
  2. CLOZARIL [Suspect]
     Indication: PSYCHOTIC DISORDER
  3. OLANZAPINE [Concomitant]
     Dosage: UNK
     Dates: end: 20081212
  4. AMISULPRIDE [Concomitant]
     Dosage: 100 MG, BID
     Dates: start: 20081212
  5. LITHIUM [Concomitant]
     Dosage: 250 MG, BID
     Dates: start: 20080725
  6. LAMOTRIGINE [Concomitant]
     Dosage: 200 MG MANE
     Dates: start: 20080725
  7. VALPROATE SODIUM [Concomitant]
     Dosage: 800 MG MANE, 120 MG NOCTE
     Dates: start: 20081006
  8. CLOZAPINE [Concomitant]
     Dosage: 400 MG MANE, 50 MG NOCTE
     Dates: start: 20080923
  9. FERROUS SULPHATE [Concomitant]
     Dosage: 325 MG NOCTE
     Dates: start: 20080701
  10. COLOXYL WITH SENNA [Concomitant]
     Dosage: UNK
     Dates: start: 20080201
  11. OXYBUTYNIN CHLORIDE [Concomitant]
     Dosage: 10 MG NOCTE
     Dates: start: 20070101

REACTIONS (7)
  - CHEST PAIN [None]
  - ELECTROCARDIOGRAM T WAVE INVERSION [None]
  - MYOCARDIAL INFARCTION [None]
  - MYOCARDIAL ISCHAEMIA [None]
  - OEDEMA PERIPHERAL [None]
  - TROPONIN T INCREASED [None]
  - VARICOSE VEIN [None]
